FAERS Safety Report 18226506 (Version 1)
Quarter: 2020Q3

REPORT INFORMATION
  Report Type: Spontaneous
  Country: US (occurrence: US)
  Receive Date: 20200901
  Receipt Date: 20200901
  Transmission Date: 20201103
  Serious: Yes (Hospitalization)
  Sender: FDA-Public Use
  Company Number: None

PATIENT
  Age: 81 Year
  Sex: Male

DRUGS (1)
  1. CAPECITABINE 500MG NOVADOZ PHARMACEUTICALS [Suspect]
     Active Substance: CAPECITABINE
     Indication: PANCREATIC CARCINOMA
     Route: 048
     Dates: start: 202008

REACTIONS (6)
  - Lip swelling [None]
  - Oral disorder [None]
  - Dysphagia [None]
  - Feeding disorder [None]
  - Fluid intake reduced [None]
  - Oral mucosal blistering [None]

NARRATIVE: CASE EVENT DATE: 20200820
